FAERS Safety Report 7299056-0 (Version None)
Quarter: 2011Q1

REPORT INFORMATION
  Report Type: 
  Country: None (occurrence: None)
  Receive Date: 20110217
  Receipt Date: 20110214
  Transmission Date: 20110831
  Serious: Yes (Hospitalization, Other)
  Sender: FDA-Public Use
  Company Number: DE-ABBOTT-11P-062-0700664-00

PATIENT
  Sex: Female

DRUGS (2)
  1. HUMIRA [Suspect]
  2. HUMIRA [Suspect]
     Indication: RHEUMATOID ARTHRITIS
     Route: 058
     Dates: start: 20100401, end: 20101001

REACTIONS (5)
  - COMPLEX REGIONAL PAIN SYNDROME [None]
  - MUSCLE CONTRACTURE [None]
  - TENOSYNOVITIS [None]
  - LYMPHOEDEMA [None]
  - MOBILITY DECREASED [None]
